FAERS Safety Report 6636548-9 (Version None)
Quarter: 2010Q1

REPORT INFORMATION
  Report Type: 
  Country: None (occurrence: None)
  Receive Date: 20100316
  Receipt Date: 20100304
  Transmission Date: 20100710
  Serious: Yes (Hospitalization)
  Sender: FDA-Public Use
  Company Number: US-WYE-H13916510

PATIENT
  Age: 8 Month
  Sex: Female
  Weight: 8 kg

DRUGS (3)
  1. IBUPROFEN [Suspect]
     Indication: EAR PAIN
     Dosage: UNKNOWN
     Route: 048
     Dates: start: 20050102
  2. OMNICEF [Suspect]
     Indication: EAR INFECTION
     Dosage: UNKNOWN
     Route: 065
     Dates: start: 20050102
  3. ACETAMINOPHEN [Suspect]
     Indication: EAR PAIN
     Dosage: 160 MG, ONCE EVERY 6 HOURS
     Route: 048
     Dates: start: 20050102, end: 20050105

REACTIONS (6)
  - DECREASED APPETITE [None]
  - DEHYDRATION [None]
  - LIVER FUNCTION TEST ABNORMAL [None]
  - OVERDOSE [None]
  - PROTHROMBIN TIME PROLONGED [None]
  - TACHYCARDIA [None]
